FAERS Safety Report 10549369 (Version 3)
Quarter: 2015Q2

REPORT INFORMATION
  Report Type: Spontaneous
  Country: US (occurrence: US)
  Receive Date: 20141028
  Receipt Date: 20150624
  Transmission Date: 20150821
  Serious: Yes (Hospitalization, Other)
  Sender: FDA-Public Use
  Company Number: US-BAYER-2014-158627

PATIENT
  Age: 20 Year
  Sex: Female
  Weight: 49.89 kg

DRUGS (10)
  1. MORPHINE [Concomitant]
     Active Substance: MORPHINE
     Indication: HEADACHE
     Dosage: 4 MG, UNK
     Route: 030
     Dates: start: 20090603
  2. MIRENA [Suspect]
     Active Substance: LEVONORGESTREL
     Indication: CONTRACEPTION
     Dosage: 20 MCG/24HR, CONT
     Route: 015
     Dates: start: 20071106, end: 20090818
  3. PHENERGAN [Concomitant]
     Active Substance: PROMETHAZINE HYDROCHLORIDE
     Indication: NAUSEA
     Dosage: TABLET EVERY 4-6 HOURS
     Route: 030
  4. NORCO [Concomitant]
     Active Substance: ACETAMINOPHEN\HYDROCODONE BITARTRATE
     Indication: PAIN
     Dosage: 10/325 MG TABLET EVERY 6 TO 8 HOURS AS NEEDED
  5. ROCEPHIN [Concomitant]
     Active Substance: CEFTRIAXONE SODIUM
  6. PHENERGAN [Concomitant]
     Active Substance: PROMETHAZINE HYDROCHLORIDE
     Indication: VOMITING
  7. TORADOL [Concomitant]
     Active Substance: KETOROLAC TROMETHAMINE
  8. FLAGYL [Concomitant]
     Active Substance: METRONIDAZOLE\METRONIDAZOLE HYDROCHLORIDE
     Dosage: UNK
     Dates: start: 20090603
  9. ULTRAM [Concomitant]
     Active Substance: TRAMADOL HYDROCHLORIDE
     Dosage: UNK
     Dates: start: 20090603
  10. DOXYCYCLINE. [Concomitant]
     Active Substance: DOXYCYCLINE
     Dosage: UNK
     Dates: start: 20090603

REACTIONS (14)
  - Uterine perforation [None]
  - Internal injury [None]
  - Depressed mood [None]
  - Fear [None]
  - Genital haemorrhage [None]
  - Depression [None]
  - Pelvic inflammatory disease [None]
  - Abdominal pain [None]
  - Device issue [None]
  - Anxiety [None]
  - Emotional distress [None]
  - Injury [None]
  - Pelvic pain [None]
  - Medical device discomfort [None]

NARRATIVE: CASE EVENT DATE: 200812
